FAERS Safety Report 19959862 (Version 8)
Quarter: 2022Q4

REPORT INFORMATION
  Report Type: Report from Study
  Country: US (occurrence: US)
  Receive Date: 20211015
  Receipt Date: 20221004
  Transmission Date: 20230113
  Serious: Yes (Other)
  Sender: FDA-Public Use
  Company Number: US-NOVARTISPH-NVSC2021US233595

PATIENT
  Sex: Female

DRUGS (2)
  1. ENTRESTO [Suspect]
     Active Substance: SACUBITRIL\VALSARTAN
     Indication: Cardiac failure chronic
     Dosage: 1 DOSAGE FORM, BID
     Route: 048
     Dates: start: 20211004
  2. METOPROLOL [Suspect]
     Active Substance: METOPROLOL
     Indication: Product used for unknown indication
     Dosage: UNK
     Route: 065

REACTIONS (15)
  - Cardiac failure [Not Recovered/Not Resolved]
  - Pneumonia [Unknown]
  - Depressed mood [Not Recovered/Not Resolved]
  - Bronchitis chronic [Unknown]
  - Chronic obstructive pulmonary disease [Unknown]
  - Asthma [Unknown]
  - Emotional disorder [Unknown]
  - Nasopharyngitis [Unknown]
  - Nasal congestion [Unknown]
  - Dyspnoea [Unknown]
  - Decreased appetite [Unknown]
  - Anxiety [Unknown]
  - Cough [Unknown]
  - Fatigue [Unknown]
  - Product use issue [Unknown]
